FAERS Safety Report 11768583 (Version 4)
Quarter: 2016Q1

REPORT INFORMATION
  Report Type: Spontaneous
  Country: US (occurrence: None)
  Receive Date: 20151123
  Receipt Date: 20160304
  Transmission Date: 20160525
  Serious: Yes (Other)
  Sender: FDA-Public Use
  Company Number: US-MDT-ADR-2015-02208

PATIENT
  Age: 68 Year
  Sex: Male

DRUGS (1)
  1. BACLOFEN INTRATHECAL 2,000MCG/ML [Suspect]
     Active Substance: BACLOFEN
     Indication: MUSCLE SPASTICITY
     Dosage: 157.3 MCG/DAY

REACTIONS (13)
  - Muscle tightness [None]
  - Screaming [None]
  - Therapeutic response decreased [None]
  - Muscle spasms [None]
  - Hypoaesthesia [None]
  - Skin abrasion [None]
  - Pain [None]
  - Pain in extremity [None]
  - Insomnia [None]
  - Limb discomfort [None]
  - Performance status decreased [None]
  - Urinary tract infection [None]
  - Influenza [None]
